FAERS Safety Report 4930114-9 (Version None)
Quarter: 2006Q1

REPORT INFORMATION
  Report Type: 
  Country: None (occurrence: None)
  Receive Date: 20060302
  Receipt Date: 20030902
  Transmission Date: 20060701
  Serious: Yes (Death, Hospitalization)
  Sender: FDA-Public Use
  Company Number: GB-AMGEN-UK046404

PATIENT
  Sex: Female

DRUGS (6)
  1. KINERET [Suspect]
     Indication: RHEUMATOID ARTHRITIS
     Dosage: 100 MG
     Route: 058
     Dates: start: 20020701, end: 20030819
  2. ATENOLOL [Concomitant]
  3. PREDNISOLONE [Concomitant]
  4. LEFLUNOMIDE [Concomitant]
  5. ACETAMINOPHEN W/ CODEINE [Concomitant]
  6. MELOXICAM [Concomitant]

REACTIONS (7)
  - ARTHRITIS BACTERIAL [None]
  - BRONCHOPNEUMONIA [None]
  - FALL [None]
  - LOWER RESPIRATORY TRACT INFECTION [None]
  - SEPSIS [None]
  - URINARY TRACT INFECTION [None]
  - WOUND INFECTION STAPHYLOCOCCAL [None]
